FAERS Safety Report 6659776-5 (Version None)
Quarter: 2010Q1

REPORT INFORMATION
  Report Type: 
  Country: None (occurrence: None)
  Receive Date: 20100330
  Receipt Date: 20100329
  Transmission Date: 20100710
  Serious: Yes (Life-Threatening, Hospitalization)
  Sender: FDA-Public Use
  Company Number: US-MERCK-1003USA04446

PATIENT
  Age: 50 Year
  Sex: Male
  Weight: 115 kg

DRUGS (9)
  1. PRINIVIL [Suspect]
     Route: 048
     Dates: start: 20091201
  2. PRINIVIL [Suspect]
     Route: 048
     Dates: start: 20100101
  3. PRINIVIL [Suspect]
     Route: 048
     Dates: start: 20100101
  4. MINOXIDIL [Suspect]
     Indication: HYPERTENSION
     Route: 048
     Dates: start: 20070101, end: 20091201
  5. HYDROCHLOROTHIAZIDE AND METOPROLOL SUCCINATE [Concomitant]
     Route: 065
     Dates: end: 20100101
  6. LIBRIUM [Concomitant]
     Route: 065
  7. VITAMINS (UNSPECIFIED) [Concomitant]
     Route: 065
  8. PRAVASTATIN SODIUM [Concomitant]
     Route: 065
     Dates: end: 20100101
  9. ASPIRIN [Concomitant]
     Route: 065

REACTIONS (8)
  - ATRIAL FIBRILLATION [None]
  - BLOOD PRESSURE INCREASED [None]
  - CARDIAC DISORDER [None]
  - COUGH [None]
  - DYSPNOEA [None]
  - HEART RATE INCREASED [None]
  - HYPERHIDROSIS [None]
  - OEDEMA PERIPHERAL [None]
